FAERS Safety Report 6416876-2 (Version None)
Quarter: 2009Q4

REPORT INFORMATION
  Report Type: 
  Country: None (occurrence: None)
  Receive Date: 20091023
  Receipt Date: 20091013
  Transmission Date: 20100525
  Serious: Yes (Hospitalization, Other)
  Sender: FDA-Public Use
  Company Number: ADR43062009

PATIENT
  Age: 20 Year
  Sex: Female

DRUGS (6)
  1. SERTRALINE HCL [Suspect]
     Indication: DEPRESSION
     Dosage: ORAL
     Route: 048
     Dates: start: 20090605
  2. CLOZARIL [Concomitant]
  3. FLUOXETINE [Concomitant]
  4. LEVOTHYROXINE SODIUM [Concomitant]
  5. SIMVASTATIN [Concomitant]
  6. VALPROATE SODIUM [Concomitant]

REACTIONS (11)
  - DISEASE RECURRENCE [None]
  - EMOTIONAL DISORDER [None]
  - HYPERCHOLESTEROLAEMIA [None]
  - HYPOTHYROIDISM [None]
  - MENTAL STATUS CHANGES [None]
  - OBESITY [None]
  - SCHIZOPHRENIA [None]
  - SEDATION [None]
  - SELF-INJURIOUS IDEATION [None]
  - TREATMENT NONCOMPLIANCE [None]
  - WEIGHT INCREASED [None]
